FAERS Safety Report 25644330 (Version 1)
Quarter: 2025Q3

REPORT INFORMATION
  Report Type: Spontaneous
  Country: CN (occurrence: CN)
  Receive Date: 20250805
  Receipt Date: 20250805
  Transmission Date: 20251020
  Serious: Yes (Other)
  Sender: PFIZER
  Company Number: CN-PFIZER INC-PV202500092701

PATIENT
  Age: 49 Year
  Sex: Female

DRUGS (7)
  1. VORICONAZOLE [Interacting]
     Active Substance: VORICONAZOLE
     Indication: Bronchopulmonary aspergillosis
     Dosage: 6 MG/KG (400 MG), 2X/DAY FOR 2 INITIAL DOSES
     Route: 042
     Dates: start: 20210818, end: 202108
  2. VORICONAZOLE [Interacting]
     Active Substance: VORICONAZOLE
     Dosage: 4 MG/KG (200 MG), 2X/DAY
     Route: 042
     Dates: start: 202108, end: 202202
  3. VORICONAZOLE [Interacting]
     Active Substance: VORICONAZOLE
     Dosage: 200 MG, DAILY
     Dates: start: 20220222, end: 20220621
  4. DASATINIB [Interacting]
     Active Substance: DASATINIB
     Indication: Philadelphia positive acute lymphocytic leukaemia
     Dosage: 100 MG, DAILY
     Dates: start: 20210114, end: 202108
  5. DASATINIB [Interacting]
     Active Substance: DASATINIB
     Dosage: 20 MG, DAILY
     Dates: start: 202108, end: 20220222
  6. DASATINIB [Interacting]
     Active Substance: DASATINIB
     Dosage: 20 MG, DAILY
     Dates: start: 20220322, end: 2022
  7. DASATINIB [Interacting]
     Active Substance: DASATINIB
     Dosage: 40 MG, DAILY
     Dates: start: 2022, end: 20220426

REACTIONS (2)
  - Potentiating drug interaction [Recovered/Resolved]
  - Pulmonary arterial hypertension [Recovered/Resolved]

NARRATIVE: CASE EVENT DATE: 20220222
